FAERS Safety Report 18776681 (Version 5)
Quarter: 2021Q1

REPORT INFORMATION
  Report Type: Spontaneous
  Country: US (occurrence: US)
  Receive Date: 20210122
  Receipt Date: 20210316
  Transmission Date: 20210419
  Serious: Yes (Hospitalization)
  Sender: FDA-Public Use
  Company Number: 2020SGN03641

PATIENT
  Age: 64 Year
  Sex: Female

DRUGS (3)
  1. TUKYSA [Suspect]
     Active Substance: TUCATINIB
     Indication: BREAST CANCER FEMALE
     Dosage: UNK, BID
     Route: 048
  2. TUKYSA [Suspect]
     Active Substance: TUCATINIB
     Dosage: UNK
     Route: 065
  3. CAPECITABINE. [Concomitant]
     Active Substance: CAPECITABINE
     Indication: BREAST CANCER FEMALE

REACTIONS (17)
  - Memory impairment [Unknown]
  - Muscle spasms [Unknown]
  - Infection [Unknown]
  - Vomiting [Unknown]
  - Cyst [Unknown]
  - Unevaluable event [Unknown]
  - Faeces hard [Unknown]
  - Confusional state [Unknown]
  - Biopsy [Unknown]
  - Product dose omission issue [Unknown]
  - Abscess [Unknown]
  - Nausea [Unknown]
  - Dizziness [Unknown]
  - Benign hepatic neoplasm [Unknown]
  - Neuropathy peripheral [Unknown]
  - Constipation [Unknown]
  - Surgery [Unknown]

NARRATIVE: CASE EVENT DATE: 20200813
